FAERS Safety Report 26063865 (Version 2)
Quarter: 2025Q4

REPORT INFORMATION
  Report Type: Spontaneous
  Country: US (occurrence: US)
  Receive Date: 20251119
  Receipt Date: 20251210
  Transmission Date: 20260117
  Serious: No
  Sender: KARYOPHARM THERAPEUTICS
  Company Number: US-KARYOPHARM-2025KPT100961

PATIENT

DRUGS (13)
  1. SELINEXOR [Suspect]
     Active Substance: SELINEXOR
     Indication: Plasma cell myeloma
     Dosage: 80 MG EVERY 7 DAYS
     Route: 048
     Dates: start: 20251107, end: 2025
  2. SELINEXOR [Suspect]
     Active Substance: SELINEXOR
     Dosage: 40 MG EVERY 7 DAYS
     Route: 048
     Dates: start: 2025
  3. WARFARIN [Concomitant]
     Active Substance: WARFARIN
  4. DEXAMETHASONE [Concomitant]
     Active Substance: DEXAMETHASONE
  5. DORZOLAMIDE [Concomitant]
     Active Substance: DORZOLAMIDE
  6. TIMOLOL MALEATE [Concomitant]
     Active Substance: TIMOLOL MALEATE
  7. VALTREX [Concomitant]
     Active Substance: VALACYCLOVIR HYDROCHLORIDE
  8. AMOXICILLIN [Concomitant]
     Active Substance: AMOXICILLIN
  9. BRIMONIDINE TARTRATE;TIMOLOL [Concomitant]
  10. ROCKLATAN [Concomitant]
     Active Substance: LATANOPROST\NETARSUDIL MESYLATE
  11. PROCHLORPERAZINE [Concomitant]
     Active Substance: PROCHLORPERAZINE
  12. CARFILZOMIB [Concomitant]
     Active Substance: CARFILZOMIB
  13. VALACYCLOVIR HYDROCHLORIDE [Concomitant]
     Active Substance: VALACYCLOVIR HYDROCHLORIDE

REACTIONS (6)
  - Muscle spasms [Unknown]
  - Memory impairment [Not Recovered/Not Resolved]
  - Depression [Unknown]
  - Anger [Unknown]
  - Vomiting [Unknown]
  - Diarrhoea [Unknown]

NARRATIVE: CASE EVENT DATE: 20250101
